FAERS Safety Report 4269801-7 (Version None)
Quarter: 2004Q1

REPORT INFORMATION
  Report Type: 
  Country: None (occurrence: None)
  Receive Date: 20040113
  Receipt Date: 20040106
  Transmission Date: 20041129
  Serious: Yes (Other)
  Sender: FDA-Public Use
  Company Number: 04-01-0006

PATIENT
  Age: 64 Year
  Sex: Male

DRUGS (6)
  1. ENALAPRIL MALEATE- IPI TABLETS [Suspect]
     Dosage: 40-20MG OD
  2. DIGOXIN [Suspect]
     Dosage: 250MCG OD
  3. SPIRONOLACTONE UNKNOWN [Suspect]
     Dosage: 25MG OD
  4. FRUSEMIDE UNKNOWN [Suspect]
     Dosage: 40-120 MG OD
  5. DOXAZOSIN MESYLATE [Concomitant]
  6. WARFARIN [Concomitant]

REACTIONS (15)
  - ALPHA HAEMOLYTIC STREPTOCOCCAL INFECTION [None]
  - ANOREXIA [None]
  - AORTIC VALVE INCOMPETENCE [None]
  - ATRIAL FIBRILLATION [None]
  - BLOOD CREATINE INCREASED [None]
  - BLOOD PRESSURE DECREASED [None]
  - BLOOD UREA INCREASED [None]
  - CARDIAC MURMUR [None]
  - CARDIAC VALVE VEGETATION [None]
  - DEHYDRATION [None]
  - DIZZINESS [None]
  - DRUG LEVEL INCREASED [None]
  - MALAISE [None]
  - PYREXIA [None]
  - VISION BLURRED [None]
